FAERS Safety Report 5890882-9 (Version None)
Quarter: 2008Q3

REPORT INFORMATION
  Report Type: 
  Country: None (occurrence: None)
  Receive Date: 20080922
  Receipt Date: 20080911
  Transmission Date: 20090109
  Serious: Yes (Other)
  Sender: FDA-Public Use
  Company Number: SE-JNJFOC-20080306626

PATIENT
  Age: 53 Year
  Sex: Female

DRUGS (7)
  1. REMICADE [Suspect]
     Route: 042
  2. REMICADE [Suspect]
     Dosage: TREATED FOR MORE THAN 6 YEARS
     Route: 042
  3. REMICADE [Suspect]
     Indication: RHEUMATOID ARTHRITIS
     Dosage: TREATED FOR MORE THAN 6 YEARS
     Route: 042
  4. METHOTREXATE [Concomitant]
     Route: 048
  5. FOLACIN [Concomitant]
     Route: 048
  6. SOLU-CORTEF [Concomitant]
     Indication: PREMEDICATION
  7. TAVEGYL [Concomitant]
     Indication: PREMEDICATION

REACTIONS (5)
  - ERYTHEMA [None]
  - INFUSION RELATED REACTION [None]
  - PARAESTHESIA [None]
  - PRURITUS [None]
  - URTICARIA [None]
